FAERS Safety Report 11298438 (Version 1)
Quarter: 2015Q3

REPORT INFORMATION
  Report Type: Spontaneous
  Country: US (occurrence: US)
  Receive Date: 20150722
  Receipt Date: 20150722
  Transmission Date: 20151125
  Serious: No
  Sender: FDA-Public Use
  Company Number: US-ELI_LILLY_AND_COMPANY-US201110006884

PATIENT
  Sex: Male

DRUGS (2)
  1. HYDROCORTISONE. [Concomitant]
     Active Substance: HYDROCORTISONE
  2. HUMATROPE [Suspect]
     Active Substance: SOMATROPIN
     Indication: HYPOTHALAMO-PITUITARY DISORDER
     Dosage: 0.5 MG, QD
     Dates: start: 201110

REACTIONS (4)
  - Carpal tunnel syndrome [Unknown]
  - Pain in extremity [Unknown]
  - Nerve compression [Unknown]
  - Arthralgia [Unknown]

NARRATIVE: CASE EVENT DATE: 201110
